FAERS Safety Report 8602601-3 (Version None)
Quarter: 2012Q3

REPORT INFORMATION
  Report Type: 
  Country: None (occurrence: None)
  Receive Date: 20120817
  Receipt Date: 19910520
  Transmission Date: 20120928
  Serious: Yes (Hospitalization, Other)
  Sender: FDA-Public Use
  Company Number: US-ROCHE-1098876

PATIENT
  Age: 61 Year
  Sex: Female

DRUGS (1)
  1. ACTIVASE [Suspect]
     Indication: MYOCARDIAL INFARCTION

REACTIONS (10)
  - MYOCARDIAL INFARCTION [None]
  - ATRIOVENTRICULAR BLOCK COMPLETE [None]
  - CHEST PAIN [None]
  - BLOOD PRESSURE DECREASED [None]
  - RESPIRATORY FAILURE [None]
  - CARDIOGENIC SHOCK [None]
  - ACUTE RESPIRATORY DISTRESS SYNDROME [None]
  - ANAEMIA [None]
  - LIMB DISCOMFORT [None]
  - ELECTROCARDIOGRAM CHANGE [None]
